FAERS Safety Report 18780279 (Version 1)
Quarter: 2021Q1

REPORT INFORMATION
  Report Type: Spontaneous
  Country: US (occurrence: US)
  Receive Date: 20210122
  Receipt Date: 20210122
  Transmission Date: 20210419
  Serious: Yes (Disabling)
  Sender: FDA-Public Use
  Company Number: None

PATIENT
  Age: 37 Year
  Sex: Female
  Weight: 56.25 kg

DRUGS (8)
  1. CALCIUM [Concomitant]
     Active Substance: CALCIUM
  2. CELEXA [Concomitant]
     Active Substance: CITALOPRAM HYDROBROMIDE
  3. VITAMIN B12 [Concomitant]
     Active Substance: CYANOCOBALAMIN
  4. ORILISSA [Suspect]
     Active Substance: ELAGOLIX SODIUM
     Indication: ENDOMETRIOSIS
     Route: 048
     Dates: start: 20190805, end: 20210104
  5. LAMICTAL [Concomitant]
     Active Substance: LAMOTRIGINE
  6. VITAMIN D [Concomitant]
     Active Substance: VITAMIN D NOS
  7. CBD [Concomitant]
     Active Substance: CANNABIDIOL
  8. CANNABIS [Concomitant]
     Active Substance: CANNABIS SATIVA SUBSP. INDICA TOP

REACTIONS (1)
  - Bone density decreased [None]

NARRATIVE: CASE EVENT DATE: 20210118
